FAERS Safety Report 8050318-9 (Version None)
Quarter: 2012Q1

REPORT INFORMATION
  Report Type: 
  Country: None (occurrence: None)
  Receive Date: 20120117
  Receipt Date: 20120105
  Transmission Date: 20120608
  Serious: Yes (Hospitalization, Other)
  Sender: FDA-Public Use
  Company Number: JP-TEVA-2011005142

PATIENT
  Sex: Male
  Weight: 70 kg

DRUGS (9)
  1. JUZENTAIHOTO [Concomitant]
  2. BENDAMUSTINE [Suspect]
     Route: 042
     Dates: start: 20110603, end: 20110707
  3. PREDNISOLONE [Concomitant]
  4. ACYCLOVIR [Concomitant]
  5. BENDAMUSTINE [Suspect]
     Route: 042
     Dates: start: 20110325, end: 20110326
  6. BENDAMUSTINE [Suspect]
     Route: 042
     Dates: start: 20110416, end: 20110417
  7. BENDAMUSTINE [Suspect]
     Indication: MANTLE CELL LYMPHOMA
     Route: 042
     Dates: start: 20110124, end: 20110225
  8. METHYLPREDNISOLONE [Concomitant]
     Dates: start: 20110123, end: 20110125
  9. ALLOPURINOL [Concomitant]
     Dates: start: 20110121, end: 20110307

REACTIONS (2)
  - FEBRILE NEUTROPENIA [None]
  - NEUTROPHIL COUNT DECREASED [None]
